FAERS Safety Report 19279647 (Version 2)
Quarter: 2021Q2

REPORT INFORMATION
  Report Type: Report from Study
  Country: US (occurrence: US)
  Receive Date: 20210520
  Receipt Date: 20210521
  Transmission Date: 20210717
  Serious: Yes (Other)
  Sender: FDA-Public Use
  Company Number: US-JNJFOC-20210524603

PATIENT

DRUGS (1)
  1. REMICADE [Suspect]
     Active Substance: INFLIXIMAB
     Indication: CROHN^S DISEASE
     Route: 042

REACTIONS (6)
  - Therapeutic product effect decreased [Unknown]
  - Skin irritation [Unknown]
  - Pneumonia [Unknown]
  - Enterostomy [Unknown]
  - Pneumonectomy [Unknown]
  - Gastrointestinal inflammation [Unknown]
